FAERS Safety Report 4443297-4 (Version None)
Quarter: 2004Q3

REPORT INFORMATION
  Report Type: 
  Country: None (occurrence: None)
  Receive Date: 20040728
  Receipt Date: 20040519
  Transmission Date: 20050211
  Serious: No
  Sender: FDA-Public Use
  Company Number: USA040568041

PATIENT
  Age: 12 Year
  Sex: Male

DRUGS (1)
  1. STRATTERA [Suspect]

REACTIONS (3)
  - COGNITIVE DISORDER [None]
  - FEELING ABNORMAL [None]
  - SOMNOLENCE [None]
